FAERS Safety Report 13082002 (Version 1)
Quarter: 2017Q1

REPORT INFORMATION
  Report Type: Spontaneous
  Country: IT (occurrence: IT)
  Receive Date: 20170103
  Receipt Date: 20170103
  Transmission Date: 20170428
  Serious: Yes (Other)
  Sender: FDA-Public Use
  Company Number: IT-BAYER-2016-247170

PATIENT
  Age: 26 Year
  Sex: Female

DRUGS (6)
  1. SIMVASTATIN. [Suspect]
     Active Substance: SIMVASTATIN
     Dosage: UNK
     Route: 048
  2. TORVAST [Suspect]
     Active Substance: ATORVASTATIN
     Dosage: 8 DF, UNK
     Route: 048
     Dates: start: 20161107
  3. DEURSIL [Suspect]
     Active Substance: URSODIOL
     Dosage: 8 DF, UNK
     Route: 048
     Dates: start: 20161107, end: 20161107
  4. ASPIRIN. [Suspect]
     Active Substance: ASPIRIN
     Dosage: UNK UNK, ONCE
     Route: 048
     Dates: start: 20161107, end: 20161107
  5. IGROTON [Suspect]
     Active Substance: CHLORTHALIDONE
     Dosage: 15 DF, UNK
     Route: 048
     Dates: start: 20161107, end: 20161107
  6. ENTACT [Suspect]
     Active Substance: ESCITALOPRAM OXALATE
     Dosage: 28 DF, UNK
     Route: 048
     Dates: start: 20161107, end: 20161107

REACTIONS (3)
  - Drug abuse [Unknown]
  - Poisoning [Unknown]
  - Sopor [Unknown]
